FAERS Safety Report 8207124-1 (Version None)
Quarter: 2012Q1

REPORT INFORMATION
  Report Type: 
  Country: None (occurrence: None)
  Receive Date: 20120314
  Receipt Date: 20120308
  Transmission Date: 20120608
  Serious: Yes (Other)
  Sender: FDA-Public Use
  Company Number: US-PFIZER INC-2012063370

PATIENT
  Sex: Male

DRUGS (1)
  1. SUTENT [Suspect]
     Indication: METASTATIC RENAL CELL CARCINOMA
     Dosage: 50 MG, DAILY
     Dates: start: 20120216

REACTIONS (9)
  - DRY SKIN [None]
  - HAEMORRHAGE [None]
  - HYPERTENSION [None]
  - CONTUSION [None]
  - FATIGUE [None]
  - GLOSSODYNIA [None]
  - BLOOD COUNT ABNORMAL [None]
  - SLEEP DISORDER [None]
  - COUGH [None]
